FAERS Safety Report 9928043 (Version 1)
Quarter: 2014Q1

REPORT INFORMATION
  Report Type: Spontaneous
  Country: US (occurrence: None)
  Receive Date: 20140226
  Receipt Date: 20140226
  Transmission Date: 20141002
  Serious: Yes (Hospitalization)
  Sender: FDA-Public Use
  Company Number: None

PATIENT
  Age: 76 Year
  Sex: Male
  Weight: 65.7 kg

DRUGS (7)
  1. PEMETREXED [Suspect]
     Indication: LUNG NEOPLASM MALIGNANT
     Route: 042
     Dates: start: 20121009, end: 20140120
  2. BEVACIZUMAB [Suspect]
     Indication: LUNG NEOPLASM MALIGNANT
     Route: 042
     Dates: start: 20121009, end: 20140120
  3. DEXAMETHASONE [Concomitant]
  4. ADVAIR DISKUS [Concomitant]
  5. METOPROLOL [Concomitant]
  6. FOLIC ACID [Concomitant]
  7. VITAMIN B12 [Concomitant]

REACTIONS (4)
  - Tachycardia [None]
  - Hypotension [None]
  - Atrial fibrillation [None]
  - Atrial flutter [None]
